FAERS Safety Report 18248008 (Version 2)
Quarter: 2021Q2

REPORT INFORMATION
  Report Type: Spontaneous
  Country: US (occurrence: US)
  Receive Date: 20200909
  Receipt Date: 20210505
  Transmission Date: 20210717
  Serious: Yes (Hospitalization, Other)
  Sender: FDA-Public Use
  Company Number: US-ASTRAZENECA-2020SF11870

PATIENT
  Age: 18933 Day
  Sex: Female
  Weight: 90.7 kg

DRUGS (50)
  1. LISINOPRIL. [Concomitant]
     Active Substance: LISINOPRIL
     Indication: BLOOD PRESSURE ABNORMAL
     Dates: start: 20080807, end: 20100724
  2. LOSARTAN. [Concomitant]
     Active Substance: LOSARTAN
     Indication: BLOOD PRESSURE ABNORMAL
     Dates: start: 20110201
  3. CITALOPRAM [Concomitant]
     Active Substance: CITALOPRAM HYDROBROMIDE
  4. HYDROXYZINE [Concomitant]
     Active Substance: HYDROXYZINE HYDROCHLORIDE
  5. BETAMETHASONE. [Concomitant]
     Active Substance: BETAMETHASONE
  6. AZITHROMYCIN ANHYDROUS. [Concomitant]
     Active Substance: AZITHROMYCIN ANHYDROUS
  7. HYDRALAZINE [Concomitant]
     Active Substance: HYDRALAZINE HYDROCHLORIDE
  8. LABETALOL [Concomitant]
     Active Substance: LABETALOL\LABETALOL HYDROCHLORIDE
  9. REGLAN [Concomitant]
     Active Substance: METOCLOPRAMIDE HYDROCHLORIDE
  10. BENADRYL [Concomitant]
     Active Substance: DIPHENHYDRAMINE HYDROCHLORIDE
  11. PRILOSEC OTC [Suspect]
     Active Substance: OMEPRAZOLE MAGNESIUM
     Indication: GASTROOESOPHAGEAL REFLUX DISEASE
     Route: 048
     Dates: start: 200001, end: 201512
  12. PRILOSEC OTC [Suspect]
     Active Substance: OMEPRAZOLE MAGNESIUM
     Indication: GASTROOESOPHAGEAL REFLUX DISEASE
     Route: 048
     Dates: start: 2003, end: 2015
  13. OMEPRAZOLE. [Suspect]
     Active Substance: OMEPRAZOLE
     Indication: GASTROOESOPHAGEAL REFLUX DISEASE
     Dosage: GENERIC
     Route: 065
     Dates: start: 2015
  14. RANITIDINE. [Concomitant]
     Active Substance: RANITIDINE
  15. TRAZODONE [Concomitant]
     Active Substance: TRAZODONE HYDROCHLORIDE
  16. PREDNISONE. [Concomitant]
     Active Substance: PREDNISONE
  17. CLOBETASOL [Concomitant]
     Active Substance: CLOBETASOL
  18. PAROXETINE. [Concomitant]
     Active Substance: PAROXETINE
  19. ACETAMINOPHEN. [Concomitant]
     Active Substance: ACETAMINOPHEN
  20. SUBLIMAZE [Concomitant]
     Active Substance: FENTANYL CITRATE
  21. PREVACID [Suspect]
     Active Substance: LANSOPRAZOLE
     Indication: GASTROOESOPHAGEAL REFLUX DISEASE
     Route: 065
     Dates: start: 2010, end: 2015
  22. TIZANIDINE. [Concomitant]
     Active Substance: TIZANIDINE
  23. FOLIC ACID. [Concomitant]
     Active Substance: FOLIC ACID
  24. AMLODIPINE [Concomitant]
     Active Substance: AMLODIPINE BESYLATE
  25. IPRATROPIUM [Concomitant]
     Active Substance: IPRATROPIUM
  26. TORSEMIDE. [Concomitant]
     Active Substance: TORSEMIDE
  27. PREVACID [Suspect]
     Active Substance: LANSOPRAZOLE
     Indication: GASTROOESOPHAGEAL REFLUX DISEASE
     Route: 065
     Dates: start: 200001, end: 201512
  28. ROLAIDS [Concomitant]
     Active Substance: CALCIUM CARBONATE\MAGNESIUM HYDROXIDE
  29. GABAPENTIN. [Concomitant]
     Active Substance: GABAPENTIN
  30. VENTOLIN [Concomitant]
     Active Substance: ALBUTEROL SULFATE
  31. ZOFRAN [Concomitant]
     Active Substance: ONDANSETRON HYDROCHLORIDE
  32. VITAMIN D3 [Concomitant]
     Active Substance: CHOLECALCIFEROL
  33. TUMS [Concomitant]
     Active Substance: CALCIUM CARBONATE
  34. ACYCLOVIR. [Concomitant]
     Active Substance: ACYCLOVIR
  35. DIAZEPAM. [Concomitant]
     Active Substance: DIAZEPAM
  36. HYDROCODONE BITARTRATE AND ACETAMINOPHEN [Concomitant]
     Active Substance: ACETAMINOPHEN\HYDROCODONE BITARTRATE
  37. IRON [Concomitant]
     Active Substance: IRON
  38. CARVEDILOL. [Concomitant]
     Active Substance: CARVEDILOL
  39. MULTIVITAMINS [Concomitant]
     Active Substance: VITAMINS
  40. VERSED [Concomitant]
     Active Substance: MIDAZOLAM HYDROCHLORIDE
  41. FAMOTIDINE. [Concomitant]
     Active Substance: FAMOTIDINE
     Dates: start: 2017
  42. MONTELUKAST [Concomitant]
     Active Substance: MONTELUKAST SODIUM
  43. NEXIUM [Suspect]
     Active Substance: ESOMEPRAZOLE MAGNESIUM
     Indication: GASTROOESOPHAGEAL REFLUX DISEASE
     Route: 048
     Dates: start: 2010, end: 2015
  44. ALDACTONE [Concomitant]
     Active Substance: SPIRONOLACTONE
  45. FUROSEMIDE. [Concomitant]
     Active Substance: FUROSEMIDE
     Indication: NEPHROPATHY
     Dates: start: 20131018, end: 201312
  46. IBUPROFEN. [Concomitant]
     Active Substance: IBUPROFEN
     Indication: PAIN
  47. POTASSIUM [Concomitant]
     Active Substance: POTASSIUM
  48. FLUTICASONE. [Concomitant]
     Active Substance: FLUTICASONE
  49. PERCOCET [Concomitant]
     Active Substance: ACETAMINOPHEN\OXYCODONE HYDROCHLORIDE
  50. METOLAZONE. [Concomitant]
     Active Substance: METOLAZONE

REACTIONS (9)
  - Renal failure [Unknown]
  - Chronic kidney disease [Not Recovered/Not Resolved]
  - Hyperparathyroidism secondary [Unknown]
  - Fluid overload [Unknown]
  - Pulmonary oedema [Unknown]
  - End stage renal disease [Not Recovered/Not Resolved]
  - Acute kidney injury [Not Recovered/Not Resolved]
  - Renal tubular necrosis [Unknown]
  - Nephrogenic anaemia [Unknown]

NARRATIVE: CASE EVENT DATE: 20151019
